FAERS Safety Report 10377996 (Version 1)
Quarter: 2014Q1

REPORT INFORMATION
  Report Type: Spontaneous
  Country: US (occurrence: None)
  Receive Date: 20140306
  Receipt Date: 20140306
  Transmission Date: 20141002
  Serious: Yes (Other)
  Sender: FDA-Public Use
  Company Number: 163-21880-13013738

PATIENT
  Age: 67 Year
  Sex: Male
  Weight: 90.72 kg

DRUGS (10)
  1. REVLIMID (LENALIDOMIDE) (15 MILLIGRAM, CAPSULES) [Suspect]
     Indication: PLASMA CELL MYELOMA
     Route: 048
     Dates: start: 20120808
  2. ACYCLOVIR (ACICLOVIR (TABLETS) [Concomitant]
  3. ATORVASTATIN CALCIUM (ATORVASTATIN CALCIUM) [Concomitant]
  4. DEXAMETHASONE (DEXAMETHASONE) [Concomitant]
  5. LOVAZA (OMEGA-3 MARINE TRIGLYCERIDES) (CAPSULES) [Concomitant]
  6. NIASPAN (NICOTINIC ACID) (TABLETS) [Concomitant]
  7. PANTOPRAZOLE SODIUM (PANTOPRAZOLE SODIUM) [Concomitant]
  8. RANEXA (RANOLAZINE) (TABLETS) [Concomitant]
  9. VELCADE (BORTEZOMIB) [Concomitant]
  10. ZOFRAN (ONDANSETRON HYDROCHLORIDE) [Concomitant]

REACTIONS (5)
  - Platelet count decreased [None]
  - Asthenia [None]
  - Dizziness [None]
  - Hypotension [None]
  - Decreased appetite [None]
